FAERS Safety Report 6750401-1 (Version None)
Quarter: 2010Q2

REPORT INFORMATION
  Report Type: 
  Country: None (occurrence: None)
  Receive Date: 20100527
  Receipt Date: 20100517
  Transmission Date: 20101027
  Serious: Yes (Death)
  Sender: FDA-Public Use
  Company Number: 10-000739

PATIENT

DRUGS (1)
  1. LOESTRIN 24 FE [Suspect]
     Dosage: TRANSPLACENTAL
     Route: 064
     Dates: start: 20100307, end: 20100509

REACTIONS (2)
  - ABORTION SPONTANEOUS [None]
  - MATERNAL DRUGS AFFECTING FOETUS [None]
